FAERS Safety Report 23233370 (Version 1)
Quarter: 2023Q4

REPORT INFORMATION
  Report Type: Spontaneous
  Country: US (occurrence: None)
  Receive Date: 20231128
  Receipt Date: 20231128
  Transmission Date: 20240110
  Serious: Yes (Other)
  Sender: FDA-Public Use
  Company Number: 2023A264310

PATIENT

DRUGS (1)
  1. FARXIGA [Suspect]
     Active Substance: DAPAGLIFLOZIN PROPANEDIOL
     Route: 048

REACTIONS (19)
  - Gait inability [Unknown]
  - Renal pain [Unknown]
  - Blood urine present [Unknown]
  - Dehydration [Unknown]
  - Urinary tract infection [Unknown]
  - Urine odour abnormal [Unknown]
  - Chromaturia [Unknown]
  - Pollakiuria [Unknown]
  - Pseudomonas infection [Unknown]
  - Pain [Unknown]
  - Abdominal distension [Unknown]
  - Eating disorder symptom [Unknown]
  - Back pain [Unknown]
  - Illness [Unknown]
  - Oedema peripheral [Unknown]
  - Oedema [Unknown]
  - Blood disorder [Unknown]
  - Visual impairment [Unknown]
  - Peripheral swelling [Unknown]
